FAERS Safety Report 25452697 (Version 1)
Quarter: 2025Q2

REPORT INFORMATION
  Report Type: Spontaneous
  Country: AU (occurrence: AU)
  Receive Date: 20250618
  Receipt Date: 20250618
  Transmission Date: 20250717
  Serious: Yes (Hospitalization)
  Sender: MYLAN
  Company Number: AU-MYLANLABS-2025M1050713

PATIENT
  Sex: Female

DRUGS (8)
  1. CLOZARIL [Interacting]
     Active Substance: CLOZAPINE
     Indication: Schizophrenia
  2. CLOZARIL [Interacting]
     Active Substance: CLOZAPINE
     Route: 048
  3. CLOZARIL [Interacting]
     Active Substance: CLOZAPINE
     Route: 048
  4. CLOZARIL [Interacting]
     Active Substance: CLOZAPINE
  5. VALPROATE [Interacting]
     Active Substance: VALPROIC ACID
     Indication: Product used for unknown indication
  6. VALPROATE [Interacting]
     Active Substance: VALPROIC ACID
     Route: 065
  7. VALPROATE [Interacting]
     Active Substance: VALPROIC ACID
     Route: 065
  8. VALPROATE [Interacting]
     Active Substance: VALPROIC ACID

REACTIONS (1)
  - Drug interaction [Unknown]
